FAERS Safety Report 10969965 (Version 2)
Quarter: 2015Q2

REPORT INFORMATION
  Report Type: Spontaneous
  Country: GB (occurrence: GB)
  Receive Date: 20150331
  Receipt Date: 20150611
  Transmission Date: 20150821
  Serious: Yes (Life-Threatening, Hospitalization, Other)
  Sender: FDA-Public Use
  Company Number: GB-CIPLA LTD.-2015GB02521

PATIENT

DRUGS (17)
  1. COLECALCIFEROL [Concomitant]
     Active Substance: CHOLECALCIFEROL
  2. HYOSCINE BUTYLBROMIDE [Concomitant]
     Active Substance: BUTYLSCOPOLAMINE
  3. MACROGOL [Concomitant]
     Active Substance: POLYETHYLENE GLYCOLS
  4. SOLIFENACIN [Concomitant]
     Active Substance: SOLIFENACIN
  5. THIAMINE [Concomitant]
     Active Substance: THIAMINE
  6. MULTIVITAMIN [Concomitant]
     Active Substance: VITAMINS
  7. PARACETAMOL [Concomitant]
     Active Substance: ACETAMINOPHEN
  8. SALBUTAMOL [Concomitant]
     Active Substance: ALBUTEROL
  9. VERAPAMIL [Suspect]
     Active Substance: VERAPAMIL HYDROCHLORIDE
     Indication: HYPERTENSION
     Dosage: 240 MG, UNK
     Route: 048
     Dates: start: 20000306, end: 20150304
  10. CLOPIDOGREL [Concomitant]
     Active Substance: CLOPIDOGREL BISULFATE
  11. SERETIDE [Concomitant]
     Active Substance: FLUTICASONE FUROATE\SALMETEROL XINAFOATE
  12. TIOTROPIUM BROMIDE [Concomitant]
     Active Substance: TIOTROPIUM BROMIDE
  13. CARVEDILOL. [Suspect]
     Active Substance: CARVEDILOL
     Indication: VARICES OESOPHAGEAL
     Dosage: 125 MG, UNK
     Route: 048
     Dates: start: 20150210, end: 20150304
  14. OMEPRAZOLE. [Concomitant]
     Active Substance: OMEPRAZOLE
  15. SPIRONOLACTONE. [Concomitant]
     Active Substance: SPIRONOLACTONE
  16. BISACODYL. [Concomitant]
     Active Substance: BISACODYL
  17. MEBEVERINE [Concomitant]
     Active Substance: MEBEVERINE

REACTIONS (4)
  - Atrioventricular block complete [Recovered/Resolved with Sequelae]
  - Dizziness [Unknown]
  - Contraindicated drug administered [Unknown]
  - Bradycardia [Unknown]

NARRATIVE: CASE EVENT DATE: 20150210
